FAERS Safety Report 20607400 (Version 4)
Quarter: 2022Q3

REPORT INFORMATION
  Report Type: Spontaneous
  Country: AR (occurrence: AR)
  Receive Date: 20220317
  Receipt Date: 20220713
  Transmission Date: 20221027
  Serious: Yes (Other)
  Sender: FDA-Public Use
  Company Number: AR-GLAXOSMITHKLINE-AR2022AMR044687

PATIENT

DRUGS (2)
  1. BENLYSTA [Suspect]
     Active Substance: BELIMUMAB
     Indication: Systemic lupus erythematosus
     Dosage: UNK, 120MG-400MG
     Route: 042
     Dates: start: 20191211, end: 202202
  2. BENLYSTA [Suspect]
     Active Substance: BELIMUMAB
     Indication: Systemic lupus erythematosus
     Dosage: 200 MG/ML, Z, WE, EVERY 7 DAYS
     Dates: start: 20191211, end: 202202

REACTIONS (4)
  - Systemic lupus erythematosus [Not Recovered/Not Resolved]
  - COVID-19 [Recovered/Resolved]
  - Renal disorder [Unknown]
  - Drug ineffective [Recovered/Resolved]

NARRATIVE: CASE EVENT DATE: 20220111
